APPROVED DRUG PRODUCT: ACARBOSE
Active Ingredient: ACARBOSE
Strength: 25MG
Dosage Form/Route: TABLET;ORAL
Application: A091343 | Product #001 | TE Code: AB
Applicant: SOMERSET THERAPEUTICS LLC
Approved: Oct 17, 2013 | RLD: No | RS: No | Type: RX